FAERS Safety Report 14034076 (Version 1)
Quarter: 2017Q4

REPORT INFORMATION
  Report Type: Spontaneous
  Country: US (occurrence: US)
  Receive Date: 20171003
  Receipt Date: 20171003
  Transmission Date: 20180321
  Serious: Yes (Hospitalization)
  Sender: FDA-Public Use
  Company Number: None

PATIENT
  Age: 9 Year
  Sex: Male
  Weight: 45 kg

DRUGS (2)
  1. RANITADINE [Concomitant]
  2. VALPROIC ACID. [Suspect]
     Active Substance: VALPROIC ACID
     Indication: SEIZURE
     Route: 048
     Dates: start: 20170831, end: 20170918

REACTIONS (4)
  - Diarrhoea [None]
  - Wrong drug administered [None]
  - Drug dispensing error [None]
  - Drug level decreased [None]

NARRATIVE: CASE EVENT DATE: 20170830
